FAERS Safety Report 24751797 (Version 4)
Quarter: 2025Q1

REPORT INFORMATION
  Report Type: Spontaneous
  Country: JP (occurrence: JP)
  Receive Date: 20241219
  Receipt Date: 20250117
  Transmission Date: 20250409
  Serious: Yes (Death, Life-Threatening, Other)
  Sender: ASTELLAS
  Company Number: JP-ASTELLAS-2024-AER-025718

PATIENT
  Age: 9 Decade
  Sex: Male

DRUGS (4)
  1. XOSPATA [Suspect]
     Active Substance: GILTERITINIB
     Indication: Acute myeloid leukaemia
     Route: 048
     Dates: start: 20241029, end: 20241218
  2. ITRACONAZOLE [Concomitant]
     Active Substance: ITRACONAZOLE
     Indication: Bronchopulmonary aspergillosis
     Route: 065
  3. FLUCONAZOLE [Concomitant]
     Active Substance: FLUCONAZOLE
     Indication: Infection
     Route: 065
  4. POSACONAZOLE [Concomitant]
     Active Substance: POSACONAZOLE
     Indication: Bronchopulmonary aspergillosis
     Route: 065

REACTIONS (3)
  - Acute myeloid leukaemia recurrent [Not Recovered/Not Resolved]
  - Bronchopulmonary aspergillosis [Not Recovered/Not Resolved]
  - Acute myeloid leukaemia [Fatal]

NARRATIVE: CASE EVENT DATE: 20241209
